FAERS Safety Report 21546013 (Version 1)
Quarter: 2022Q4

REPORT INFORMATION
  Report Type: Report from Study
  Country: US (occurrence: US)
  Receive Date: 20221103
  Receipt Date: 20221103
  Transmission Date: 20230112
  Serious: No
  Sender: FDA-Public Use
  Company Number: US-ABBVIE-4177180

PATIENT
  Sex: Female

DRUGS (1)
  1. IMBRUVICA [Suspect]
     Active Substance: IBRUTINIB
     Indication: Chronic lymphocytic leukaemia
     Dosage: STRENGTH: 140 MILLIGRAM
     Route: 048
     Dates: start: 202202

REACTIONS (7)
  - Hyperhidrosis [Unknown]
  - Insomnia [Unknown]
  - Anxiety [Unknown]
  - Panic reaction [Unknown]
  - Psychomotor hyperactivity [Unknown]
  - Fatigue [Unknown]
  - Blood pressure increased [Unknown]
